FAERS Safety Report 5194593-7 (Version None)
Quarter: 2006Q4

REPORT INFORMATION
  Report Type: 
  Country: None (occurrence: None)
  Receive Date: 20061229
  Receipt Date: 20061219
  Transmission Date: 20070319
  Serious: Yes (Death, Other)
  Sender: FDA-Public Use
  Company Number: CA-JNJFOC-20061206244

PATIENT
  Sex: Female

DRUGS (3)
  1. REMICADE [Suspect]
  2. REMICADE [Suspect]
     Dosage: 11 INFUSIONS ON UNSPECIFIED DATES
  3. REMICADE [Suspect]
     Indication: RHEUMATOID ARTHRITIS

REACTIONS (1)
  - DISSEMINATED TUBERCULOSIS [None]
